FAERS Safety Report 12736463 (Version 2)
Quarter: 2017Q1

REPORT INFORMATION
  Report Type: Spontaneous
  Country: US (occurrence: US)
  Receive Date: 20160912
  Receipt Date: 20170112
  Transmission Date: 20170428
  Serious: No
  Sender: FDA-Public Use
  Company Number: US-GLAXOSMITHKLINE-US2016131349

PATIENT
  Age: 69 Year
  Sex: Female

DRUGS (1)
  1. NICORETTE MINT [Suspect]
     Active Substance: NICOTINE
     Indication: PRODUCT USED FOR UNKNOWN INDICATION
     Dosage: 2 MG, QD, FROM LAST 9 TO 10 YEARS USING IT DAILY

REACTIONS (3)
  - Nicotine dependence [Unknown]
  - Incorrect drug administration duration [Unknown]
  - Product quality issue [Unknown]
